FAERS Safety Report 8809941 (Version 1)
Quarter: 2012Q4

REPORT INFORMATION
  Report Type: 
  Country: US (occurrence: US)
  Receive Date: 20120926
  Receipt Date: 20120926
  Transmission Date: 20130627
  Serious: Yes (Hospitalization, Other)
  Sender: FDA-Public Use
  Company Number: US-009507513-1203USA01686

PATIENT

DRUGS (12)
  1. FOSAMAX [Suspect]
     Indication: OSTEOPOROSIS
     Dosage: 70 mg, UNK
     Route: 048
     Dates: start: 20011220, end: 20061008
  2. FOSAMAX [Suspect]
     Indication: OSTEOPENIA
  3. FOSAMAX [Suspect]
     Indication: OSTEOPOROSIS
     Dosage: 70 mg, UNK
     Route: 048
     Dates: start: 20080219, end: 201010
  4. FOSAMAX [Suspect]
     Indication: OSTEOPENIA
  5. EVISTA [Concomitant]
     Dates: start: 2000, end: 2002
  6. CELEXA [Concomitant]
     Indication: DEPRESSION
     Dosage: 20-40
     Dates: start: 2000
  7. PROCARDIA XL [Concomitant]
     Dosage: 30 mg, UNK
     Dates: start: 2000
  8. PROTONIX [Concomitant]
     Dates: start: 20010520
  9. NEXIUM [Concomitant]
     Dates: start: 20010520
  10. PRILOSEC [Concomitant]
     Dosage: 20 mg, UNK
     Dates: start: 20010520
  11. NIFEDICAL [Concomitant]
     Dates: start: 2000
  12. FOSAMAX D [Suspect]
     Dosage: 70 mg, UNK
     Route: 048
     Dates: start: 20061009, end: 20070620

REACTIONS (19)
  - Femur fracture [Unknown]
  - Low turnover osteopathy [Unknown]
  - Tooth disorder [Unknown]
  - Foot fracture [Recovered/Resolved]
  - Fracture delayed union [Unknown]
  - Fracture nonunion [Unknown]
  - Adverse event [Unknown]
  - Hypertonic bladder [Unknown]
  - Blood cholesterol increased [Not Recovered/Not Resolved]
  - Bursitis [Unknown]
  - Spinal osteoarthritis [Unknown]
  - Scoliosis [Unknown]
  - Hyperparathyroidism [Unknown]
  - Headache [Unknown]
  - Hyperlipidaemia [Unknown]
  - Fall [Unknown]
  - Joint injury [Unknown]
  - Fall [Unknown]
  - Onychomycosis [Unknown]
